FAERS Safety Report 21634198 (Version 5)
Quarter: 2023Q2

REPORT INFORMATION
  Report Type: Spontaneous
  Country: IT (occurrence: IT)
  Receive Date: 20221123
  Receipt Date: 20230428
  Transmission Date: 20230721
  Serious: Yes (Hospitalization, Other)
  Sender: FDA-Public Use
  Company Number: IT-JNJFOC-20220348463

PATIENT

DRUGS (36)
  1. REMODULIN [Suspect]
     Active Substance: TREPROSTINIL
     Indication: Pulmonary arterial hypertension
     Dosage: UNK, CONTINUING
     Route: 058
     Dates: start: 20220121, end: 20220122
  2. REMODULIN [Suspect]
     Active Substance: TREPROSTINIL
     Dosage: UNK, CONTINUING
     Route: 058
     Dates: start: 20220122, end: 20220123
  3. REMODULIN [Suspect]
     Active Substance: TREPROSTINIL
     Dosage: UNK, CONTINUING
     Route: 058
     Dates: start: 20220123, end: 20220125
  4. REMODULIN [Suspect]
     Active Substance: TREPROSTINIL
     Dosage: UNK, CONTINUING
     Route: 058
     Dates: start: 20220125, end: 20220203
  5. REMODULIN [Suspect]
     Active Substance: TREPROSTINIL
     Dosage: UNK, CONTINUING
     Route: 058
     Dates: start: 20220203, end: 20220207
  6. REMODULIN [Suspect]
     Active Substance: TREPROSTINIL
     Dosage: UNK, CONTINUING
     Route: 058
     Dates: start: 20220207, end: 20220210
  7. REMODULIN [Suspect]
     Active Substance: TREPROSTINIL
     Dosage: UNK, CONTINUING
     Route: 058
     Dates: start: 20220210, end: 20220214
  8. REMODULIN [Suspect]
     Active Substance: TREPROSTINIL
     Dosage: UNK, CONTINUING
     Route: 058
     Dates: start: 20220214, end: 20220218
  9. REMODULIN [Suspect]
     Active Substance: TREPROSTINIL
     Dosage: UNK, CONTINUING
     Route: 058
     Dates: start: 20220218, end: 20220225
  10. REMODULIN [Suspect]
     Active Substance: TREPROSTINIL
     Dosage: UNK, CONTINUING
     Route: 058
     Dates: start: 20220225, end: 20220302
  11. REMODULIN [Suspect]
     Active Substance: TREPROSTINIL
     Dosage: UNK, CONTINUING
     Route: 058
     Dates: start: 20220302, end: 202203
  12. REMODULIN [Suspect]
     Active Substance: TREPROSTINIL
     Dosage: UNK, CONTINUING
     Route: 058
     Dates: start: 20220307, end: 20220420
  13. SELEXIPAG [Suspect]
     Active Substance: SELEXIPAG
     Indication: Pulmonary arterial hypertension
     Dosage: 400 ?G
     Route: 048
     Dates: start: 20200616, end: 20200625
  14. SELEXIPAG [Suspect]
     Active Substance: SELEXIPAG
     Dosage: 800 ?G
     Route: 048
     Dates: start: 20200626, end: 20200702
  15. SELEXIPAG [Suspect]
     Active Substance: SELEXIPAG
     Dosage: 1600 ?G
     Route: 048
     Dates: start: 20200710, end: 20200716
  16. SELEXIPAG [Suspect]
     Active Substance: SELEXIPAG
     Dosage: 2000 ?G
     Route: 048
     Dates: start: 20200717, end: 20200820
  17. SELEXIPAG [Suspect]
     Active Substance: SELEXIPAG
     Dosage: 1200 ?G
     Route: 048
     Dates: start: 20200703, end: 20200709
  18. SELEXIPAG [Suspect]
     Active Substance: SELEXIPAG
     Dosage: 2400 ?G
     Route: 048
     Dates: start: 20200821, end: 20200827
  19. SELEXIPAG [Suspect]
     Active Substance: SELEXIPAG
     Dosage: 2400 ?G
     Route: 048
     Dates: start: 20200828, end: 20200903
  20. SELEXIPAG [Suspect]
     Active Substance: SELEXIPAG
     Dosage: 2800 ?G
     Route: 048
     Dates: start: 20200828, end: 20200903
  21. SELEXIPAG [Suspect]
     Active Substance: SELEXIPAG
     Dosage: 3200 ?G
     Route: 048
     Dates: start: 20200904, end: 20220125
  22. EPOPROSTENOL SODIUM [Suspect]
     Active Substance: EPOPROSTENOL SODIUM
     Indication: Pulmonary arterial hypertension
     Dosage: TOTAL DAILY DOSE 10
     Route: 042
     Dates: start: 20220421, end: 20220513
  23. EPOPROSTENOL SODIUM [Suspect]
     Active Substance: EPOPROSTENOL SODIUM
     Dosage: TOTAL DAILY DOSE 17
     Route: 042
     Dates: start: 20220513, end: 20220617
  24. EPOPROSTENOL SODIUM [Suspect]
     Active Substance: EPOPROSTENOL SODIUM
     Dosage: TOTAL DAILY DOSE 22
     Route: 042
     Dates: start: 20220617, end: 20221026
  25. EPOPROSTENOL SODIUM [Suspect]
     Active Substance: EPOPROSTENOL SODIUM
     Dosage: TOTAL DAILY DOSE 23
     Route: 042
     Dates: start: 20221026
  26. MACITENTAN [Suspect]
     Active Substance: MACITENTAN
     Indication: Pulmonary arterial hypertension
     Dosage: UNK
     Route: 048
  27. MACITENTAN [Suspect]
     Active Substance: MACITENTAN
     Indication: Pulmonary arterial hypertension
     Dosage: 10 MG
     Route: 048
     Dates: start: 20200615
  28. REVATIO [Concomitant]
     Active Substance: SILDENAFIL CITRATE
     Indication: Pulmonary arterial hypertension
     Dosage: UNK
     Route: 048
     Dates: start: 20210319
  29. AMITRIPTYLINE [Concomitant]
     Active Substance: AMITRIPTYLINE
     Indication: Depression
     Dosage: UNK
     Route: 048
     Dates: start: 20000103
  30. ZOLPIDEM [Concomitant]
     Active Substance: ZOLPIDEM TARTRATE
     Indication: Depression
     Dosage: UNK
     Route: 048
     Dates: start: 20000103
  31. VALPROATE SODIUM [Concomitant]
     Active Substance: VALPROATE SODIUM
     Indication: Depression
     Dosage: UNK
     Route: 048
     Dates: start: 20000103
  32. VALACYCLOVIR HYDROCHLORIDE [Concomitant]
     Active Substance: VALACYCLOVIR HYDROCHLORIDE
     Indication: Prophylaxis
     Dosage: UNK
     Route: 048
     Dates: start: 202211
  33. TRIMETHOPRIM [Concomitant]
     Active Substance: TRIMETHOPRIM
     Indication: Prophylaxis
     Dosage: UNK
     Route: 048
     Dates: start: 202211
  34. LENALIDOMIDE [Concomitant]
     Active Substance: LENALIDOMIDE
     Indication: Plasma cell myeloma
     Dosage: UNK
     Route: 042
     Dates: start: 202211
  35. DARATUMUMAB [Concomitant]
     Active Substance: DARATUMUMAB
     Indication: Plasma cell myeloma
     Dosage: UNK
     Route: 042
     Dates: start: 202211
  36. WARFARIN [Concomitant]
     Active Substance: WARFARIN
     Indication: Prophylaxis
     Dosage: UNK
     Route: 048
     Dates: start: 202205

REACTIONS (3)
  - Hepatic cyst ruptured [Recovered/Resolved]
  - Infusion site rash [Recovered/Resolved with Sequelae]
  - Infusion site pain [Recovered/Resolved]

NARRATIVE: CASE EVENT DATE: 20220101
